FAERS Safety Report 20205449 (Version 1)
Quarter: 2021Q4

REPORT INFORMATION
  Report Type: Other
  Country: CN (occurrence: None)
  Receive Date: 20211220
  Receipt Date: 20211220
  Transmission Date: 20220303
  Serious: Yes (Death, Other)
  Sender: FDA-Public Use
  Company Number: CN-ROCHE-2980546

PATIENT

DRUGS (13)
  1. MYCOPHENOLATE MOFETIL [Suspect]
     Active Substance: MYCOPHENOLATE MOFETIL
     Indication: Prophylaxis against graft versus host disease
     Dosage: 1 DAY BEFORE TRANSPLANTATION TO 28 DAY AFTER TRANSPLANTATION
     Route: 048
  2. METHOTREXATE [Suspect]
     Active Substance: METHOTREXATE
     Indication: Prophylaxis against graft versus host disease
     Dosage: ON 1ST, 3RD AND 6TH DAY
     Route: 041
  3. METHOTREXATE [Suspect]
     Active Substance: METHOTREXATE
     Dosage: ON 11TH DAY
     Route: 041
  4. CYCLOSPORINE [Suspect]
     Active Substance: CYCLOSPORINE
     Indication: Prophylaxis against graft versus host disease
     Dosage: FROM 5 DAYS AFTER TRANSPLANTATION
     Route: 041
  5. FLUDARABINE [Suspect]
     Active Substance: FLUDARABINE PHOSPHATE
     Indication: Prophylaxis against transplant rejection
     Dosage: 5 TO 2 DAYS BEFORE TRANSPLANTATION
     Route: 065
  6. CYCLOPHOSPHAMIDE [Suspect]
     Active Substance: CYCLOPHOSPHAMIDE
     Indication: Prophylaxis against transplant rejection
     Dosage: 2 TO 5 DAYS BEFORE TRASPLANT
     Route: 065
  7. LAPINE T-LYMPHOCYTE IMMUNE GLOBULIN [Suspect]
     Active Substance: LAPINE T-LYMPHOCYTE IMMUNE GLOBULIN
     Indication: Prophylaxis against transplant rejection
     Dosage: 2 TO 5 DAYS BEFORE TRASPLANT
     Route: 065
  8. HYDROCORTISONE [Suspect]
     Active Substance: HYDROCORTISONE
     Indication: Pyrexia
     Route: 065
  9. MESNA [Concomitant]
     Active Substance: MESNA
  10. SULFAMETHOXAZOLE [Concomitant]
     Active Substance: SULFAMETHOXAZOLE
  11. GANCICLOVIR [Concomitant]
     Active Substance: GANCICLOVIR
     Indication: Antiviral prophylaxis
     Route: 042
  12. NORFLOXACIN [Concomitant]
     Active Substance: NORFLOXACIN
  13. FLUCONAZOLE [Concomitant]
     Active Substance: FLUCONAZOLE

REACTIONS (8)
  - Sepsis [Fatal]
  - Pneumonia [Fatal]
  - Central nervous system infection [Fatal]
  - Epstein-Barr virus associated lymphoproliferative disorder [Recovered/Resolved]
  - Off label use [Unknown]
  - Cytomegalovirus viraemia [Unknown]
  - Anal infection [Unknown]
  - Epstein-Barr viraemia [Unknown]
